FAERS Safety Report 7363605-4 (Version None)
Quarter: 2011Q1

REPORT INFORMATION
  Report Type: 
  Country: None (occurrence: None)
  Receive Date: 20110321
  Receipt Date: 20110314
  Transmission Date: 20110831
  Serious: Yes (Other)
  Sender: FDA-Public Use
  Company Number: KR-PFIZER INC-2011055033

PATIENT
  Sex: Male

DRUGS (1)
  1. CELEBREX [Suspect]
     Indication: MUSCULOSKELETAL PAIN
     Dosage: UNK
     Route: 048
     Dates: start: 20110214, end: 20110303

REACTIONS (17)
  - MYALGIA [None]
  - EAR PAIN [None]
  - ASPARTATE AMINOTRANSFERASE INCREASED [None]
  - PAIN [None]
  - PRURITUS [None]
  - HEARING IMPAIRED [None]
  - VIITH NERVE PARALYSIS [None]
  - URTICARIA [None]
  - EYE DISORDER [None]
  - HEAD DISCOMFORT [None]
  - BACK PAIN [None]
  - HYPERSENSITIVITY [None]
  - ALANINE AMINOTRANSFERASE INCREASED [None]
  - RHINORRHOEA [None]
  - MUSCULOSKELETAL PAIN [None]
  - OROPHARYNGEAL PAIN [None]
  - NASOPHARYNGITIS [None]
